FAERS Safety Report 9694189 (Version 1)
Quarter: 2013Q4

REPORT INFORMATION
  Report Type: Spontaneous
  Country: JP (occurrence: JP)
  Receive Date: 20131118
  Receipt Date: 20131118
  Transmission Date: 20140711
  Serious: Yes (Hospitalization)
  Sender: FDA-Public Use
  Company Number: PHHY2013JP129113

PATIENT
  Sex: 0

DRUGS (12)
  1. DOXORUBICIN [Suspect]
     Indication: PRIMARY MEDIASTINAL LARGE B-CELL LYMPHOMA
     Dosage: 50 MG/M2, UNK
  2. IFOSFAMIDE [Suspect]
     Indication: PRIMARY MEDIASTINAL LARGE B-CELL LYMPHOMA
     Dosage: 1500 MG/M2, UNK
  3. CYTARABINE [Suspect]
     Indication: PRIMARY MEDIASTINAL LARGE B-CELL LYMPHOMA
  4. VINCRISTINE [Suspect]
     Indication: PRIMARY MEDIASTINAL LARGE B-CELL LYMPHOMA
     Dosage: 2 MG, UNK
  5. PREDNISOLONE [Suspect]
     Indication: PRIMARY MEDIASTINAL LARGE B-CELL LYMPHOMA
  6. CYCLOPHOSPHAMIDE [Suspect]
     Indication: PRIMARY MEDIASTINAL LARGE B-CELL LYMPHOMA
  7. RITUXIMAB [Suspect]
     Indication: PRIMARY MEDIASTINAL LARGE B-CELL LYMPHOMA
     Dosage: 375 MG/M2, UNK
  8. CARBOPLATIN [Concomitant]
     Indication: PRIMARY MEDIASTINAL LARGE B-CELL LYMPHOMA
     Dosage: 300 MG/M2, UNK
  9. ETOPOSIDE [Concomitant]
     Indication: PRIMARY MEDIASTINAL LARGE B-CELL LYMPHOMA
     Dosage: 100 MG/M2, UNK
  10. ETOPOSIDE [Concomitant]
     Dosage: 20 MG/KG, UNK
  11. DEXAMETHASONE [Concomitant]
     Indication: PRIMARY MEDIASTINAL LARGE B-CELL LYMPHOMA
  12. RANIMUSTINE [Concomitant]
     Indication: PRIMARY MEDIASTINAL LARGE B-CELL LYMPHOMA
     Dosage: 25 MG/M2, UNK

REACTIONS (13)
  - Pulmonary congestion [Recovering/Resolving]
  - Pericardial effusion [Recovered/Resolved]
  - Fatigue [Recovering/Resolving]
  - Cardiotoxicity [Recovering/Resolving]
  - Cardiac failure [Recovering/Resolving]
  - Left ventricular dysfunction [Recovering/Resolving]
  - Oedema peripheral [Recovering/Resolving]
  - Dyspnoea exertional [Recovering/Resolving]
  - Left ventricular hypertrophy [Recovering/Resolving]
  - Pulmonary hypertension [Recovering/Resolving]
  - Vascular resistance pulmonary increased [Recovering/Resolving]
  - Sinus tachycardia [Recovering/Resolving]
  - Drug ineffective [Unknown]
